FAERS Safety Report 5755178-4 (Version None)
Quarter: 2008Q2

REPORT INFORMATION
  Report Type: 
  Country: None (occurrence: None)
  Receive Date: 20080529
  Receipt Date: 20080529
  Transmission Date: 20081010
  Serious: Yes (Death)
  Sender: FDA-Public Use
  Company Number: None

PATIENT
  Sex: Female
  Weight: 67.2 kg

DRUGS (2)
  1. DOCETAXEL [Suspect]
     Indication: HEAD AND NECK CANCER
     Dosage: 60MG/M2 , Q 2 WKS, IV
     Route: 042
     Dates: start: 20080104, end: 20080509
  2. GEMCITABINE [Suspect]
     Indication: HEAD AND NECK CANCER
     Dosage: 3000MG/M2, Q 2 WKS, IV
     Route: 042
     Dates: start: 20080104, end: 20080509

REACTIONS (1)
  - DEATH [None]
